FAERS Safety Report 7929084 (Version 4)
Quarter: 2020Q3

REPORT INFORMATION
  Report Type: Spontaneous
  Country: FR (occurrence: FR)
  Receive Date: 20110503
  Receipt Date: 20110613
  Transmission Date: 20201105
  Serious: Yes (Death, Hospitalization, Other)
  Sender: FDA-Public Use
  Company Number: FR-PFIZER INC-2011091298

PATIENT
  Age: 73 Year
  Sex: Female

DRUGS (16)
  1. DIACEREIN [Suspect]
     Active Substance: DIACEREIN
     Indication: OSTEOARTHRITIS
     Dosage: 100 MG, DAILY
     Route: 048
     Dates: end: 20110301
  2. LASIX [Suspect]
     Active Substance: FUROSEMIDE
     Indication: HYPERTENSION
     Dosage: 60 MG, DAILY
     Route: 048
     Dates: end: 20110301
  3. PERFALGAN [Suspect]
     Active Substance: ACETAMINOPHEN
     Indication: ARTHRALGIA
     Dosage: 1 G, 1 IN 6 HR
     Route: 042
     Dates: start: 20110222, end: 20110223
  4. PRADAXA [Suspect]
     Active Substance: DABIGATRAN ETEXILATE MESYLATE
     Indication: THROMBOSIS PROPHYLAXIS
     Dosage: 110 MG, 2X/DAY
     Route: 048
     Dates: start: 20110223, end: 20110228
  5. INIPOMP [Suspect]
     Active Substance: PANTOPRAZOLE SODIUM
     Dosage: 40 MG, 1X/DAY
     Route: 048
     Dates: end: 20110301
  6. FERROUS SULFATE. [Suspect]
     Active Substance: FERROUS SULFATE
     Indication: ANAEMIA
     Dosage: 1 DF, DAILY
     Route: 048
     Dates: start: 20110223, end: 20110301
  7. HYDROCHLOROTHIAZIDE\VALSARTAN [Suspect]
     Active Substance: HYDROCHLOROTHIAZIDE\VALSARTAN
     Indication: HYPERTENSION
     Dosage: (160MG/25MG) 1 DF PER DAY
     Route: 048
     Dates: end: 20110301
  8. LOVENOX [Suspect]
     Active Substance: ENOXAPARIN SODIUM
     Indication: THROMBOSIS PROPHYLAXIS
     Dosage: 400 IU/ 0.4 ML (1 INJECTION  POST?OPERATIVELY)
     Route: 058
     Dates: start: 20110222, end: 20110222
  9. CELIPROLOL [Suspect]
     Active Substance: CELIPROLOL
     Indication: HYPERTENSION
     Dosage: 200 MG/DAY
     Route: 048
     Dates: end: 20110301
  10. HYDERGINE [Suspect]
     Active Substance: ERGOLOID MESYLATES
     Dosage: 4.5 MG, DAILY
     Route: 048
     Dates: end: 20110301
  11. XANAX [Suspect]
     Active Substance: ALPRAZOLAM
     Indication: ANXIETY
     Dosage: 0.5 MG, 1X/DAY
     Route: 048
     Dates: end: 20110301
  12. TOPALGIC (FRANCE) [Suspect]
     Active Substance: TRAMADOL HYDROCHLORIDE
     Indication: ARTHRALGIA
     Dosage: 300 MG, 1X/DAY
     Route: 042
     Dates: start: 20110222, end: 20110223
  13. DAFALGAN [Suspect]
     Active Substance: ACETAMINOPHEN
     Indication: ARTHRALGIA
     Dosage: 3 G, DAILY
     Route: 048
     Dates: start: 20110224, end: 20110301
  14. TOPALGIC (FRANCE) [Suspect]
     Active Substance: TRAMADOL HYDROCHLORIDE
     Dosage: 150 MG, 1X/DAY
     Route: 048
     Dates: start: 20110225, end: 20110301
  15. URAPIDIL [Suspect]
     Active Substance: URAPIDIL
     Indication: HYPERTENSION
     Dosage: 60 MG, 2X/DAY
     Route: 048
     Dates: end: 20110301
  16. XYZAL [Suspect]
     Active Substance: LEVOCETIRIZINE DIHYDROCHLORIDE
     Dosage: 10 MG, 1X/DAY
     Route: 048
     Dates: end: 20110301

REACTIONS (4)
  - Peripheral venous disease [Fatal]
  - Cardiac arrest [Fatal]
  - Haemoglobin decreased [Fatal]
  - Pain [Fatal]

NARRATIVE: CASE EVENT DATE: 20110218
